FAERS Safety Report 6671246-7 (Version None)
Quarter: 2010Q2

REPORT INFORMATION
  Report Type: 
  Country: None (occurrence: None)
  Receive Date: 20100405
  Receipt Date: 20100405
  Transmission Date: 20101027
  Serious: Yes (Hospitalization)
  Sender: FDA-Public Use
  Company Number: None

PATIENT
  Age: 68 Year
  Sex: Male
  Weight: 81.6475 kg

DRUGS (1)
  1. BARIUM SULFATE + IODINE [Suspect]
     Indication: COMPUTERISED TOMOGRAM
     Dosage: (LATE MARCH EARLY APRIL 2009)

REACTIONS (4)
  - ABDOMINAL PAIN [None]
  - DIARRHOEA [None]
  - FACE OEDEMA [None]
  - PAIN [None]
